FAERS Safety Report 6310347-X (Version None)
Quarter: 2009Q3

REPORT INFORMATION
  Report Type: 
  Country: None (occurrence: None)
  Receive Date: 20090814
  Receipt Date: 20090812
  Transmission Date: 20100115
  Serious: Yes (Death)
  Sender: FDA-Public Use
  Company Number: PHEH2009US09172

PATIENT
  Sex: Male

DRUGS (1)
  1. GLEEVEC [Suspect]
     Indication: ABDOMINAL NEOPLASM
     Dosage: 400MG QD
     Route: 048
     Dates: start: 20090623

REACTIONS (2)
  - DEATH [None]
  - MALAISE [None]
